FAERS Safety Report 5221462-6 (Version None)
Quarter: 2007Q1

REPORT INFORMATION
  Report Type: 
  Country: None (occurrence: None)
  Receive Date: 20070126
  Receipt Date: 20070123
  Transmission Date: 20070707
  Serious: Yes (Hospitalization)
  Sender: FDA-Public Use
  Company Number: US-SHR-US-2007-000533

PATIENT
  Age: 26 Year
  Sex: Female

DRUGS (1)
  1. MIRENA [Suspect]
     Indication: CONTRACEPTION
     Dosage: 20 A?G/DAY, CONT
     Route: 015
     Dates: start: 20070103, end: 20070103

REACTIONS (6)
  - HYPERSENSITIVITY [None]
  - NAUSEA [None]
  - PROCEDURAL HYPOTENSION [None]
  - PROCEDURAL PAIN [None]
  - PROCEDURAL VOMITING [None]
  - SYNCOPE [None]
